FAERS Safety Report 5535851-3 (Version None)
Quarter: 2007Q4

REPORT INFORMATION
  Report Type: 
  Country: None (occurrence: None)
  Receive Date: 20071120
  Receipt Date: 20070829
  Transmission Date: 20080405
  Serious: No
  Sender: FDA-Public Use
  Company Number: WAES 0708USA05449

PATIENT
  Age: 80 Year
  Sex: Female

DRUGS (11)
  1. JANUVIA [Suspect]
     Indication: TYPE 2 DIABETES MELLITUS
     Dosage: 100 MG DAILY PO
     Route: 048
     Dates: start: 20070701, end: 20070801
  2. AMBIEN [Concomitant]
  3. PLAQUENIL [Concomitant]
  4. TRAVATAN [Concomitant]
  5. TYLENOL W/ CODEINE [Concomitant]
  6. ZETIA [Concomitant]
  7. FLUCONAZOLE [Concomitant]
  8. GABAPENTIN [Concomitant]
  9. METOPROLOL [Concomitant]
  10. NORTRIPTYLINE [Concomitant]
  11. PREDNISONE TAB [Concomitant]

REACTIONS (1)
  - ALOPECIA [None]
